FAERS Safety Report 9035085 (Version 1)
Quarter: 2013Q1

REPORT INFORMATION
  Report Type: Spontaneous
  Country: US (occurrence: US)
  Receive Date: 20130129
  Receipt Date: 20130129
  Transmission Date: 20140127
  Serious: No
  Sender: FDA-Public Use
  Company Number: US-ABBOTT-12P-163-0890771-00

PATIENT
  Sex: Male
  Weight: 93.07 kg

DRUGS (6)
  1. HUMIRA 40 MG/0.8 ML PEN [Suspect]
     Indication: PSORIASIS
     Route: 058
     Dates: start: 201105, end: 20111213
  2. HUMIRA 40 MG/0.8 ML PEN [Suspect]
     Indication: PSORIATIC ARTHROPATHY
     Route: 058
     Dates: start: 20120105
  3. METHOTREXATE [Concomitant]
     Indication: PSORIASIS
     Dosage: TAKING OFF AND ON AS NEEDED
  4. METHOTREXATE [Concomitant]
     Route: 048
     Dates: start: 20120105
  5. LIPITOR [Concomitant]
     Indication: BLOOD CHOLESTEROL INCREASED
  6. ACTOS [Concomitant]
     Indication: DIABETES MELLITUS

REACTIONS (6)
  - Nausea [Not Recovered/Not Resolved]
  - Vomiting [Not Recovered/Not Resolved]
  - Headache [Not Recovered/Not Resolved]
  - Rhinorrhoea [Not Recovered/Not Resolved]
  - Productive cough [Not Recovered/Not Resolved]
  - Psoriasis [Not Recovered/Not Resolved]
